FAERS Safety Report 14257398 (Version 2)
Quarter: 2017Q4

REPORT INFORMATION
  Report Type: Report from Study
  Country: BR (occurrence: BR)
  Receive Date: 20171207
  Receipt Date: 20171210
  Transmission Date: 20180321
  Serious: Yes (Life-Threatening)
  Sender: FDA-Public Use
  Company Number: PHHY2015BR003098

PATIENT
  Sex: Female
  Weight: 78 kg

DRUGS (6)
  1. ACLASTA [Suspect]
     Active Substance: ZOLEDRONIC ACID
     Indication: OSTEOPENIA
     Dosage: 1 DF (5 MG/100 ML), DF Q12MO
     Route: 042
     Dates: start: 2017
  2. TORLOS [Concomitant]
     Indication: HYPERTENSION
     Dosage: 1 DF, QD (2 YEARS AGO)
     Route: 048
  3. OSTEONUTRI [Concomitant]
     Indication: OSTEOPOROSIS
     Dosage: 1 DF, QD
     Route: 048
     Dates: start: 2017
  4. ACLASTA [Suspect]
     Active Substance: ZOLEDRONIC ACID
     Indication: OSTEOPOROSIS
     Dosage: 5 MG, Q12MO
     Route: 042
     Dates: start: 20131217
  5. ETNA [Concomitant]
     Active Substance: UNSPECIFIED INGREDIENT
     Indication: OSTEOARTHRITIS
     Dosage: 1 DF, BID
     Dates: start: 201705
  6. UC II [Concomitant]
     Indication: OSTEOARTHRITIS
     Dosage: 1 DF, QD
     Route: 048
     Dates: start: 201705

REACTIONS (9)
  - Feeling abnormal [Recovered/Resolved]
  - Pain [Recovered/Resolved]
  - Influenza like illness [Unknown]
  - Fall [Unknown]
  - Overweight [Unknown]
  - Musculoskeletal discomfort [Not Recovered/Not Resolved]
  - Malaise [Recovered/Resolved]
  - Mobility decreased [Recovered/Resolved]
  - Pyrexia [Recovered/Resolved]

NARRATIVE: CASE EVENT DATE: 2014
